FAERS Safety Report 17838065 (Version 12)
Quarter: 2022Q1

REPORT INFORMATION
  Report Type: Spontaneous
  Country: CA (occurrence: CA)
  Receive Date: 20200528
  Receipt Date: 20220311
  Transmission Date: 20220423
  Serious: Yes (Other)
  Sender: FDA-Public Use
  Company Number: CA-CELLTRION INC.-2020CA018753

PATIENT

DRUGS (14)
  1. INFLECTRA [Suspect]
     Active Substance: INFLIXIMAB-DYYB
     Indication: Colitis ulcerative
     Dosage: 275 MG, EVERY 8 WEEKS
     Route: 042
     Dates: start: 20200127
  2. INFLECTRA [Suspect]
     Active Substance: INFLIXIMAB-DYYB
     Dosage: 275 MG, EVERY 8 WEEKS
     Route: 042
     Dates: start: 20200324
  3. INFLECTRA [Suspect]
     Active Substance: INFLIXIMAB-DYYB
     Dosage: 275 MG, EVERY 8 WEEKS
     Route: 042
     Dates: start: 20200521
  4. INFLECTRA [Suspect]
     Active Substance: INFLIXIMAB-DYYB
     Dosage: 275 MG, EVERY 8 WEEKS
     Route: 042
     Dates: start: 20200720, end: 20200720
  5. INFLECTRA [Suspect]
     Active Substance: INFLIXIMAB-DYYB
     Dosage: 275 MG, EVERY 8 WEEKS
     Route: 042
     Dates: start: 20200916
  6. INFLECTRA [Suspect]
     Active Substance: INFLIXIMAB-DYYB
     Dosage: 275 MG, EVERY 8 WEEKS
     Route: 042
     Dates: start: 20201110
  7. INFLECTRA [Suspect]
     Active Substance: INFLIXIMAB-DYYB
     Dosage: 275 MG, EVERY 8 WEEKS
     Route: 042
     Dates: start: 20210118
  8. INFLECTRA [Suspect]
     Active Substance: INFLIXIMAB-DYYB
     Dosage: 275 MG, EVERY 8 WEEKS
     Route: 042
     Dates: start: 20210318
  9. INFLECTRA [Suspect]
     Active Substance: INFLIXIMAB-DYYB
     Dosage: 275 MG, EVERY 8 WEEKS
     Route: 042
     Dates: start: 20210510
  10. INFLECTRA [Suspect]
     Active Substance: INFLIXIMAB-DYYB
     Dosage: 275 MG, EVERY 8 WEEKS
     Route: 042
     Dates: start: 20210705
  11. INFLECTRA [Suspect]
     Active Substance: INFLIXIMAB-DYYB
     Dosage: 275 MG, EVERY 8 WEEKS
     Route: 042
     Dates: start: 20210830
  12. INFLECTRA [Suspect]
     Active Substance: INFLIXIMAB-DYYB
     Dosage: 275 MG, EVERY 8 WEEKS
     Route: 042
     Dates: start: 20211025
  13. INFLECTRA [Suspect]
     Active Substance: INFLIXIMAB-DYYB
     Dosage: 275 MG, EVERY 8 WEEKS
     Route: 042
     Dates: start: 20211220
  14. INFLECTRA [Suspect]
     Active Substance: INFLIXIMAB-DYYB
     Dosage: 275 MG, EVERY 8 WEEKS
     Route: 042
     Dates: start: 20220301

REACTIONS (5)
  - Crohn^s disease [Unknown]
  - Condition aggravated [Unknown]
  - Off label use [Unknown]
  - Intentional product use issue [Unknown]
  - Inappropriate schedule of product administration [Unknown]

NARRATIVE: CASE EVENT DATE: 20210118
